FAERS Safety Report 24697217 (Version 1)
Quarter: 2024Q4

REPORT INFORMATION
  Report Type: Spontaneous
  Country: CZ (occurrence: CZ)
  Receive Date: 20241204
  Receipt Date: 20241204
  Transmission Date: 20250115
  Serious: Yes (Other)
  Sender: NOVARTIS
  Company Number: CZ-002147023-NVSC2024CZ229623

PATIENT
  Age: 62 Year

DRUGS (5)
  1. IMATINIB [Suspect]
     Active Substance: IMATINIB
     Indication: Chronic myeloid leukaemia
     Dosage: 400 MG, QD
     Route: 065
     Dates: start: 201008
  2. NILOTINIB [Suspect]
     Active Substance: NILOTINIB
     Indication: Chronic myeloid leukaemia
     Dosage: 200 MG, BID (2X200 MG)
     Route: 048
     Dates: start: 201207
  3. NILOTINIB [Suspect]
     Active Substance: NILOTINIB
     Dosage: 200 MG (2X200 MG)
     Route: 048
     Dates: start: 20121202, end: 2017
  4. NILOTINIB [Suspect]
     Active Substance: NILOTINIB
     Dosage: 2X 200MG/DAY TWICE WEEKLY
     Route: 048
     Dates: end: 202211
  5. ASCIMINIB [Suspect]
     Active Substance: ASCIMINIB
     Indication: Chronic myeloid leukaemia
     Dosage: 2X40 MG, DAILY
     Route: 065
     Dates: start: 20240514

REACTIONS (10)
  - Peripheral artery stenosis [Not Recovered/Not Resolved]
  - Arterial insufficiency [Not Recovered/Not Resolved]
  - Chronic myeloid leukaemia [Unknown]
  - Malignant neoplasm progression [Unknown]
  - Ischaemia [Recovered/Resolved]
  - Muscle spasms [Recovered/Resolved]
  - Bone pain [Not Recovered/Not Resolved]
  - Myalgia [Not Recovered/Not Resolved]
  - Mobility decreased [Not Recovered/Not Resolved]
  - Loss of therapeutic response [Recovering/Resolving]

NARRATIVE: CASE EVENT DATE: 20210901
